FAERS Safety Report 20126020 (Version 1)
Quarter: 2021Q4

REPORT INFORMATION
  Report Type: Spontaneous
  Country: MA (occurrence: MA)
  Receive Date: 20211129
  Receipt Date: 20211129
  Transmission Date: 20220303
  Serious: Yes (Life-Threatening, Hospitalization)
  Sender: FDA-Public Use
  Company Number: MA-MYLANLABS-2021M1087805

PATIENT
  Age: 85 Year
  Sex: Female

DRUGS (3)
  1. MIDAZOLAM [Suspect]
     Active Substance: MIDAZOLAM
     Indication: Induction of anaesthesia
     Dosage: 2 MILLIGRAM
     Route: 042
  2. MIDAZOLAM [Suspect]
     Active Substance: MIDAZOLAM
     Indication: Premedication
  3. PROPOFOL [Concomitant]
     Active Substance: PROPOFOL
     Indication: Induction of anaesthesia
     Dosage: 1 MILLIGRAM/KILOGRAM
     Route: 065

REACTIONS (4)
  - Myasthenia gravis crisis [Recovered/Resolved]
  - Acute respiratory failure [Recovered/Resolved]
  - Cardio-respiratory arrest [Recovered/Resolved]
  - Myasthenia gravis [Recovered/Resolved]
